FAERS Safety Report 25811859 (Version 1)
Quarter: 2025Q3

REPORT INFORMATION
  Report Type: Spontaneous
  Country: US (occurrence: None)
  Receive Date: 20250916
  Receipt Date: 20250916
  Transmission Date: 20251021
  Serious: Yes (Hospitalization)
  Sender: FDA-CTU
  Company Number: None

PATIENT
  Age: 31 Year
  Sex: Male

DRUGS (2)
  1. RINVOQ [Suspect]
     Active Substance: UPADACITINIB
     Indication: Crohn^s disease
     Dosage: 30MG DAILY ?
  2. PREDNISONE [Suspect]
     Active Substance: PREDNISONE

REACTIONS (11)
  - Feeling abnormal [None]
  - Pain [None]
  - Arthritis [None]
  - Blood testosterone abnormal [None]
  - Dyschezia [None]
  - Nasopharyngitis [None]
  - Asthenia [None]
  - Impaired healing [None]
  - Crohn^s disease [None]
  - Therapy interrupted [None]
  - Product prescribing issue [None]
